FAERS Safety Report 24290379 (Version 1)
Quarter: 2024Q3

REPORT INFORMATION
  Report Type: Spontaneous
  Country: US (occurrence: None)
  Receive Date: 20240906
  Receipt Date: 20240906
  Transmission Date: 20241017
  Serious: Yes (Hospitalization)
  Sender: Public
  Company Number: None

PATIENT
  Age: 59 Year
  Sex: Male
  Weight: 86 kg

DRUGS (1)
  1. VYXEOS [Suspect]
     Active Substance: CYTARABINE\DAUNORUBICIN

REACTIONS (6)
  - Anaemia [None]
  - Lymphopenia [None]
  - Device related infection [None]
  - Enterobacter infection [None]
  - Sepsis [None]
  - Febrile neutropenia [None]

NARRATIVE: CASE EVENT DATE: 20240820
